FAERS Safety Report 16718155 (Version 1)
Quarter: 2019Q3

REPORT INFORMATION
  Report Type: Spontaneous
  Country: US (occurrence: US)
  Receive Date: 20190819
  Receipt Date: 20190819
  Transmission Date: 20191005
  Serious: No
  Sender: FDA-Public Use
  Company Number: US-AMGEN-USASP2019130838

PATIENT
  Age: 67 Year
  Sex: Male

DRUGS (3)
  1. REPATHA [Suspect]
     Active Substance: EVOLOCUMAB
     Indication: BLOOD CHOLESTEROL INCREASED
     Dosage: 420 MILLIGRAM, QMO
     Route: 065
     Dates: start: 20190812
  2. ZETIA [Concomitant]
     Active Substance: EZETIMIBE
     Dosage: 10 MILLIGRAM, QD
  3. ROSUVASTATIN. [Concomitant]
     Active Substance: ROSUVASTATIN
     Indication: BLOOD CHOLESTEROL INCREASED
     Dosage: 10 MILLIGRAM, 2 TIMES/WK

REACTIONS (5)
  - Pruritus genital [Recovering/Resolving]
  - Eye pruritus [Unknown]
  - Genital rash [Recovering/Resolving]
  - Pruritus [Unknown]
  - Genital swelling [Recovering/Resolving]

NARRATIVE: CASE EVENT DATE: 20190812
